FAERS Safety Report 17730067 (Version 1)
Quarter: 2020Q2

REPORT INFORMATION
  Report Type: Spontaneous
  Country: US (occurrence: US)
  Receive Date: 20200430
  Receipt Date: 20200430
  Transmission Date: 20200714
  Serious: Yes (Hospitalization, Other)
  Sender: FDA-Public Use
  Company Number: US-PURDUE PHARMA-USA-2020-0151554

PATIENT
  Sex: Male

DRUGS (1)
  1. OXYCONTIN [Suspect]
     Active Substance: OXYCODONE HYDROCHLORIDE
     Indication: PAIN
     Dosage: 10 MG, Q12H
     Route: 048

REACTIONS (7)
  - Overdose [Unknown]
  - Memory impairment [Unknown]
  - Unevaluable event [Unknown]
  - Drug dependence [Unknown]
  - Renal failure [Unknown]
  - Mobility decreased [Unknown]
  - Dysarthria [Unknown]
